FAERS Safety Report 7582606-4 (Version None)
Quarter: 2011Q2

REPORT INFORMATION
  Report Type: 
  Country: None (occurrence: None)
  Receive Date: 20110630
  Receipt Date: 20110615
  Transmission Date: 20111010
  Serious: Yes (Hospitalization)
  Sender: FDA-Public Use
  Company Number: CA-JNJFOC-20110608476

PATIENT
  Age: 2 Year
  Sex: Male
  Weight: 12 kg

DRUGS (2)
  1. CHILDREN'S BENADRYL ALLERGY [Suspect]
     Route: 048
     Dates: start: 20110607, end: 20110610
  2. CHILDREN'S BENADRYL ALLERGY [Suspect]
     Indication: ARTHROPOD BITE
     Route: 048
     Dates: start: 20110611, end: 20110612

REACTIONS (4)
  - PRODUCT QUALITY ISSUE [None]
  - CONVULSION [None]
  - OVERDOSE [None]
  - OFF LABEL USE [None]
